FAERS Safety Report 7601530-1 (Version None)
Quarter: 2011Q2

REPORT INFORMATION
  Report Type: 
  Country: None (occurrence: None)
  Receive Date: 20110629
  Receipt Date: 20100519
  Transmission Date: 20111010
  Serious: Yes (Other)
  Sender: FDA-Public Use
  Company Number: 702340

PATIENT
  Age: 61 Year
  Sex: Male
  Weight: 110.9 kg

DRUGS (4)
  1. COZAAR [Concomitant]
  2. KLONOPIN [Suspect]
     Indication: CONVULSION
     Dosage: 1 MG, 3 PER DAY, ORAL
     Route: 048
     Dates: start: 19940101
  3. PROCARDIA [Concomitant]
  4. GLUCOPHATE (METFORMIN) [Concomitant]

REACTIONS (6)
  - ABDOMINAL PAIN [None]
  - GASTROENTERITIS VIRAL [None]
  - PRODUCT QUALITY ISSUE [None]
  - INFLUENZA LIKE ILLNESS [None]
  - HEADACHE [None]
  - FEELING ABNORMAL [None]
